FAERS Safety Report 13083112 (Version 3)
Quarter: 2017Q1

REPORT INFORMATION
  Report Type: Spontaneous
  Country: US (occurrence: US)
  Receive Date: 20170104
  Receipt Date: 20170224
  Transmission Date: 20170428
  Serious: No
  Sender: FDA-Public Use
  Company Number: US-TAIHO ONCOLOGY INC-EU-2016-03295

PATIENT
  Age: 63 Year
  Sex: Female

DRUGS (5)
  1. METOPROLOL. [Concomitant]
     Active Substance: METOPROLOL
     Dosage: NI
  2. IBUPROFEN. [Concomitant]
     Active Substance: IBUPROFEN
     Dosage: NI
  3. ZOLPIDEM [Concomitant]
     Active Substance: ZOLPIDEM\ZOLPIDEM TARTRATE
     Dosage: NI
  4. LONSURF [Suspect]
     Active Substance: TIPIRACIL HYDROCHLORIDE\TRIFLURIDINE
     Indication: COLON CANCER
     Route: 048
     Dates: start: 20161123
  5. AMLODIPINE [Concomitant]
     Active Substance: AMLODIPINE BESYLATE
     Dosage: NI

REACTIONS (8)
  - Dysgeusia [Unknown]
  - Nausea [Unknown]
  - Decreased appetite [Not Recovered/Not Resolved]
  - Weight decreased [Unknown]
  - Angular cheilitis [Unknown]
  - Fatigue [Not Recovered/Not Resolved]
  - Alopecia [Unknown]
  - Cytopenia [Unknown]

NARRATIVE: CASE EVENT DATE: 201611
